FAERS Safety Report 23698583 (Version 2)
Quarter: 2025Q2

REPORT INFORMATION
  Report Type: Spontaneous
  Country: JP (occurrence: JP)
  Receive Date: 20240402
  Receipt Date: 20250429
  Transmission Date: 20250716
  Serious: Yes (Hospitalization, Other)
  Sender: Phathom Pharmaceuticals
  Company Number: JP-PHATHOM PHARMACEUTICALS INC.-2024PHT00166

PATIENT
  Age: 61 Year
  Sex: Female

DRUGS (12)
  1. VONOPRAZAN FUMARATE [Suspect]
     Active Substance: VONOPRAZAN FUMARATE
     Indication: Abdominal pain upper
     Route: 048
     Dates: start: 202302, end: 20240309
  2. PREDNISOLONE [Suspect]
     Active Substance: PREDNISOLONE
     Indication: Systemic lupus erythematosus
     Route: 065
  3. PREDNISOLONE [Suspect]
     Active Substance: PREDNISOLONE
     Indication: Antiphospholipid syndrome
  4. BISOPROLOL [Concomitant]
     Active Substance: BISOPROLOL
  5. ZINC [Concomitant]
     Active Substance: ZINC
  6. ROSUVASTATIN [Concomitant]
     Active Substance: ROSUVASTATIN
  7. AMLODIPINE [Concomitant]
     Active Substance: AMLODIPINE BESYLATE
  8. MIYA-BM [Concomitant]
     Active Substance: CLOSTRIDIUM BUTYRICUM SPORES STRAIN M-55
  9. BERAPROST SODIUM [Concomitant]
     Active Substance: BERAPROST SODIUM
  10. WARFARIN [Concomitant]
     Active Substance: WARFARIN
  11. BELSOMRA [Concomitant]
     Active Substance: SUVOREXANT
  12. POLARAMINE [Concomitant]
     Active Substance: DEXCHLORPHENIRAMINE MALEATE

REACTIONS (2)
  - Gastrointestinal candidiasis [Recovering/Resolving]
  - Off label use [Recovered/Resolved]

NARRATIVE: CASE EVENT DATE: 20230201
